FAERS Safety Report 22781157 (Version 3)
Quarter: 2024Q1

REPORT INFORMATION
  Report Type: Spontaneous
  Country: US (occurrence: US)
  Receive Date: 20230803
  Receipt Date: 20240326
  Transmission Date: 20240410
  Serious: Yes (Other)
  Sender: FDA-Public Use
  Company Number: US-SA-SAC20230731001255

PATIENT
  Age: 52 Year
  Sex: Female
  Weight: 103 kg

DRUGS (28)
  1. DUPIXENT [Suspect]
     Active Substance: DUPILUMAB
     Indication: Asthma
     Dosage: 300 MG, QOW
     Route: 058
  2. DUPIXENT [Suspect]
     Active Substance: DUPILUMAB
     Indication: Illness
  3. NUCALA [Concomitant]
     Active Substance: MEPOLIZUMAB
     Dosage: UNK
  4. NUCALA [Concomitant]
     Active Substance: MEPOLIZUMAB
  5. FASENRA [Concomitant]
     Active Substance: BENRALIZUMAB
  6. FASENRA [Concomitant]
     Active Substance: BENRALIZUMAB
  7. HUMULIN N [Concomitant]
     Active Substance: INSULIN HUMAN
  8. LANTUS [Concomitant]
     Active Substance: INSULIN GLARGINE
  9. CARVEDILOL [Concomitant]
     Active Substance: CARVEDILOL
  10. NOVOLOG [Concomitant]
     Active Substance: INSULIN ASPART
  11. CROMOLYN SODIUM [Concomitant]
     Active Substance: CROMOLYN SODIUM
  12. ADVAIR HFA [Concomitant]
     Active Substance: FLUTICASONE PROPIONATE\SALMETEROL XINAFOATE
  13. ALBUTEROL\IPRATROPIUM [Concomitant]
     Active Substance: ALBUTEROL\IPRATROPIUM
  14. AZITHROMYCIN [Concomitant]
     Active Substance: AZITHROMYCIN
  15. PREDNISONE [Concomitant]
     Active Substance: PREDNISONE
  16. SPIRIVA [Concomitant]
     Active Substance: TIOTROPIUM BROMIDE MONOHYDRATE
  17. OMEPRAZOLE [Concomitant]
     Active Substance: OMEPRAZOLE
  18. ROSUVASTATIN CALCIUM [Concomitant]
     Active Substance: ROSUVASTATIN CALCIUM
  19. AMLODIPINE BESYLATE [Concomitant]
     Active Substance: AMLODIPINE BESYLATE
  20. TRAZODONE HCL [Concomitant]
     Active Substance: TRAZODONE HYDROCHLORIDE
  21. DOCUSATE SODIUM [Concomitant]
     Active Substance: DOCUSATE SODIUM
  22. FLUTICASONE PROPIONATE [Concomitant]
     Active Substance: FLUTICASONE PROPIONATE
  23. ACETAMINOPHEN\HYDROCODONE [Concomitant]
     Active Substance: ACETAMINOPHEN\HYDROCODONE
  24. FEXOFENADINE HYDROCHLORIDE [Concomitant]
     Active Substance: FEXOFENADINE HYDROCHLORIDE
  25. TORSEMIDE [Concomitant]
     Active Substance: TORSEMIDE
  26. MELATONIN [Concomitant]
     Active Substance: MELATONIN
  27. GUAIFENESIN [Concomitant]
     Active Substance: GUAIFENESIN
  28. PROAIR DIGIHALER [Concomitant]
     Active Substance: ALBUTEROL SULFATE

REACTIONS (4)
  - Pneumonia [Unknown]
  - Cystic fibrosis [Unknown]
  - Condition aggravated [Unknown]
  - Illness [Not Recovered/Not Resolved]
